FAERS Safety Report 5836778-X (Version None)
Quarter: 2008Q3

REPORT INFORMATION
  Report Type: 
  Country: None (occurrence: None)
  Receive Date: 20080806
  Receipt Date: 20080806
  Transmission Date: 20090109
  Serious: Yes (Disabling)
  Sender: FDA-Public Use
  Company Number: None

PATIENT
  Age: 74 Year
  Sex: Female
  Weight: 48.0813 kg

DRUGS (1)
  1. DEFEROXAMINE MESYLATE [Suspect]
     Indication: IRON METABOLISM DISORDER
     Dosage: 2 GRAMS QDAY OVER 12 HOURS SQ
     Route: 058
     Dates: start: 20080717, end: 20080728

REACTIONS (1)
  - VISUAL IMPAIRMENT [None]
